FAERS Safety Report 17207835 (Version 1)
Quarter: 2019Q4

REPORT INFORMATION
  Report Type: Spontaneous
  Country: US (occurrence: US)
  Receive Date: 20191205
  Receipt Date: 20191205
  Transmission Date: 20200122
  Serious: No
  Sender: FDA-Public Use
  Company Number: None

PATIENT

DRUGS (9)
  1. ZEGERID [Suspect]
     Active Substance: OMEPRAZOLE\SODIUM BICARBONATE
  2. PRILOSEC [Suspect]
     Active Substance: OMEPRAZOLE MAGNESIUM
  3. OMEPRAZOLE. [Suspect]
     Active Substance: OMEPRAZOLE
  4. METFORMIN [Suspect]
     Active Substance: METFORMIN HYDROCHLORIDE
  5. ACIPHEX [Suspect]
     Active Substance: RABEPRAZOLE SODIUM
  6. NEXIUM [Suspect]
     Active Substance: ESOMEPRAZOLE MAGNESIUM
  7. DEXILANT [Suspect]
     Active Substance: DEXLANSOPRAZOLE
  8. ABILIFY [Suspect]
     Active Substance: ARIPIPRAZOLE
  9. PROTONIX [Suspect]
     Active Substance: PANTOPRAZOLE SODIUM

REACTIONS (2)
  - Acute kidney injury [None]
  - Product substitution issue [None]
